FAERS Safety Report 8189605-2 (Version None)
Quarter: 2012Q1

REPORT INFORMATION
  Report Type: 
  Country: None (occurrence: None)
  Receive Date: 20120307
  Receipt Date: 20120229
  Transmission Date: 20120608
  Serious: Yes (Death, Hospitalization)
  Sender: FDA-Public Use
  Company Number: US-BRISTOL-MYERS SQUIBB COMPANY-16207656

PATIENT
  Age: 68 Year
  Sex: Female
  Weight: 48 kg

DRUGS (1)
  1. ERBITUX [Suspect]
     Indication: ANAL CANCER
     Dosage: NO OF COURSES:2 25AP11
     Dates: start: 20110314, end: 20110425

REACTIONS (10)
  - FATIGUE [None]
  - DIARRHOEA [None]
  - PNEUMONITIS [None]
  - RENAL FAILURE [None]
  - INFECTION [None]
  - HYPERGLYCAEMIA [None]
  - HYPOALBUMINAEMIA [None]
  - DEHYDRATION [None]
  - ACIDOSIS [None]
  - EMBOLISM [None]
